FAERS Safety Report 4434096-8 (Version None)
Quarter: 2004Q3

REPORT INFORMATION
  Report Type: 
  Country: None (occurrence: None)
  Receive Date: 20040825
  Receipt Date: 20040709
  Transmission Date: 20050211
  Serious: Yes (Hospitalization)
  Sender: FDA-Public Use
  Company Number: 03P-114-0214781-00

PATIENT
  Age: 50 Year
  Sex: Female
  Weight: 74 kg

DRUGS (9)
  1. HUMIRA [Suspect]
     Indication: RHEUMATOID ARTHRITIS
     Dosage: 1 IN 2 WK, SUBCUTANEOUS
     Route: 058
     Dates: start: 20030204, end: 20030326
  2. METHOTREXATE [Concomitant]
  3. PREDNISONE [Concomitant]
  4. COLECALCIFEROL [Concomitant]
  5. CALCIDO [Concomitant]
  6. OMEPRAZOLE [Concomitant]
  7. CHLORTALIDONE [Concomitant]
  8. FOLIC ACID [Concomitant]
  9. PARACETAMOL [Concomitant]

REACTIONS (7)
  - CONDITION AGGRAVATED [None]
  - INFECTION [None]
  - OBLITERATIVE BRONCHIOLITIS [None]
  - PNEUMOCYSTIS CARINII PNEUMONIA [None]
  - PNEUMONIA [None]
  - RHEUMATOID ARTHRITIS [None]
  - THERAPY NON-RESPONDER [None]
